FAERS Safety Report 7571568-1 (Version None)
Quarter: 2011Q2

REPORT INFORMATION
  Report Type: 
  Country: None (occurrence: None)
  Receive Date: 20110624
  Receipt Date: 20110610
  Transmission Date: 20111010
  Serious: Yes (Disabling)
  Sender: FDA-Public Use
  Company Number: GB-ARROW GEN-2011-08557

PATIENT
  Age: 65 Year
  Sex: Female

DRUGS (1)
  1. CITALOPRAM (UNKNOWN) [Suspect]
     Indication: DEPRESSION
     Dosage: 0.5 DF (STRENGTH 10MG)

REACTIONS (14)
  - ABDOMINAL DISCOMFORT [None]
  - DEPRESSION [None]
  - SLEEP DISORDER [None]
  - TREMOR [None]
  - FEELING OF DESPAIR [None]
  - ANXIETY [None]
  - MUSCLE CONTRACTIONS INVOLUNTARY [None]
  - PANIC ATTACK [None]
  - DECREASED APPETITE [None]
  - POLLAKIURIA [None]
  - HYPERHIDROSIS [None]
  - SUICIDAL IDEATION [None]
  - CHEST DISCOMFORT [None]
  - CONFUSIONAL STATE [None]
